FAERS Safety Report 17717473 (Version 2)
Quarter: 2020Q2

REPORT INFORMATION
  Report Type: Spontaneous
  Country: US (occurrence: US)
  Receive Date: 20200428
  Receipt Date: 20200429
  Transmission Date: 20200714
  Serious: No
  Sender: FDA-Public Use
  Company Number: US-PFIZER INC-2020170088

PATIENT
  Age: 57 Year
  Sex: Female
  Weight: 54.43 kg

DRUGS (4)
  1. ESTRING [Suspect]
     Active Substance: ESTRADIOL
     Indication: VULVOVAGINAL DRYNESS
     Dosage: 2 MG, EVERY 3 MONTHS (1 EVERY 3 MONTHS OR 90 DAYS)
     Route: 067
     Dates: start: 201902
  2. BIOTIN [Concomitant]
     Active Substance: BIOTIN
     Indication: SUPPLEMENTATION THERAPY
     Dosage: 10000 UG, DAILY
     Route: 048
     Dates: start: 201912
  3. MAGNESIUM [Concomitant]
     Active Substance: MAGNESIUM
     Indication: SUPPLEMENTATION THERAPY
     Dosage: 250 MG, DAILY
     Route: 048
     Dates: start: 201912
  4. ASPIRIN 81 [Concomitant]
     Active Substance: ASPIRIN
     Indication: CEREBROVASCULAR ACCIDENT PROPHYLAXIS
     Dosage: 81 MG, DAILY
     Route: 048

REACTIONS (3)
  - Vulvovaginal burning sensation [Recovered/Resolved]
  - Vulvovaginal discomfort [Recovered/Resolved]
  - Suspected counterfeit product [Recovered/Resolved]

NARRATIVE: CASE EVENT DATE: 20200417
